FAERS Safety Report 5020115-7 (Version None)
Quarter: 2006Q2

REPORT INFORMATION
  Report Type: 
  Country: None (occurrence: None)
  Receive Date: 20060601
  Receipt Date: 20060518
  Transmission Date: 20061013
  Serious: Yes (Other)
  Sender: FDA-Public Use
  Company Number: PHBS2006FR07606

PATIENT
  Age: 14 Year
  Sex: Male

DRUGS (4)
  1. VISUDYNE [Suspect]
     Indication: CHOROIDAL NEOVASCULARISATION
     Dosage: 6 MG/M^2 ONCE IV
     Route: 042
  2. VISUDYNE [Suspect]
     Indication: CHOROIDITIS
     Dosage: 6 MG/M^2 ONCE IV
     Route: 042
  3. VISUDYNE [Suspect]
     Indication: TOXOPLASMOSIS
     Dosage: 6 MG/M^2 ONCE IV
     Route: 042
  4. ANTIOXOPLASMIC THERAPY [Concomitant]

REACTIONS (1)
  - RETINAL DISORDER [None]
